FAERS Safety Report 4400908-7 (Version None)
Quarter: 2004Q3

REPORT INFORMATION
  Report Type: 
  Country: None (occurrence: None)
  Receive Date: 20040907
  Receipt Date: 20030804
  Transmission Date: 20050211
  Serious: No
  Sender: FDA-Public Use
  Company Number: US-BRISTOL-MYERS SQUIBB COMPANY-12345310

PATIENT
  Age: 78 Year
  Sex: Female
  Weight: 77 kg

DRUGS (10)
  1. COUMADIN [Suspect]
     Indication: ATRIAL FIBRILLATION
     Dosage: CURRENT DOAGE: 5MG AND 1/2 OF A 5MG TABLET ALTERNATING DAILY
     Route: 048
     Dates: start: 20030201
  2. DIGOXIN [Concomitant]
  3. PROPRANOLOL [Concomitant]
  4. DITROPAN [Concomitant]
  5. ASPIRIN [Concomitant]
  6. BEXTRA [Concomitant]
  7. AMBIEN [Concomitant]
  8. CENTRUM [Concomitant]
  9. VITAMIN E [Concomitant]
  10. CALCIUM [Concomitant]

REACTIONS (6)
  - DIARRHOEA [None]
  - DYSGEUSIA [None]
  - FEELING ABNORMAL [None]
  - GLOSSODYNIA [None]
  - INTERNATIONAL NORMALISED RATIO DECREASED [None]
  - LETHARGY [None]
